FAERS Safety Report 19503412 (Version 1)
Quarter: 2021Q3

REPORT INFORMATION
  Report Type: Spontaneous
  Country: US (occurrence: US)
  Receive Date: 20210707
  Receipt Date: 20210707
  Transmission Date: 20211014
  Serious: No
  Sender: FDA-Public Use
  Company Number: US-ROCHE-2727455

PATIENT
  Weight: 70.37 kg

DRUGS (11)
  1. CELLCEPT [Suspect]
     Active Substance: MYCOPHENOLATE MOFETIL\MYCOPHENOLATE MOFETIL HYDROCHLORIDE
     Indication: PULMONARY FIBROSIS
     Dosage: 1500 MG IN THE MORNING AND 1000 MG IN AFTERNOON ;ONGOING: YES
     Route: 048
  2. BACTRIM [Concomitant]
     Active Substance: SULFAMETHOXAZOLE\TRIMETHOPRIM
     Indication: PULMONARY FIBROSIS
  3. BENZONATATE. [Concomitant]
     Active Substance: BENZONATATE
     Indication: COUGH
     Dates: start: 2009
  4. PREDNISONE. [Suspect]
     Active Substance: PREDNISONE
     Indication: PULMONARY FIBROSIS
     Route: 065
  5. FAMOTIDINE. [Concomitant]
     Active Substance: FAMOTIDINE
     Indication: GASTROOESOPHAGEAL REFLUX DISEASE
     Dates: start: 2020
  6. PREDNISONE. [Suspect]
     Active Substance: PREDNISONE
     Route: 065
  7. GABAPENTIN. [Concomitant]
     Active Substance: GABAPENTIN
     Dates: start: 20200429
  8. PREDNISONE. [Suspect]
     Active Substance: PREDNISONE
     Route: 065
  9. ROSUVASTATIN. [Concomitant]
     Active Substance: ROSUVASTATIN
     Indication: BLOOD CHOLESTEROL INCREASED
  10. NEXIUM [Concomitant]
     Active Substance: ESOMEPRAZOLE MAGNESIUM
     Indication: GASTROOESOPHAGEAL REFLUX DISEASE
  11. MONTELUKAST [Concomitant]
     Active Substance: MONTELUKAST SODIUM
     Indication: PULMONARY FIBROSIS
     Dates: start: 2008

REACTIONS (8)
  - Intentional product use issue [Unknown]
  - Bronchitis [Recovered/Resolved]
  - Off label use [Unknown]
  - Sensory loss [Unknown]
  - Pyrexia [Unknown]
  - Foot fracture [Unknown]
  - Cushingoid [Recovered/Resolved]
  - Fall [Unknown]
